FAERS Safety Report 8906025 (Version 3)
Quarter: 2013Q3

REPORT INFORMATION
  Report Type: Spontaneous
  Country: DK (occurrence: DK)
  Receive Date: 20121113
  Receipt Date: 20130715
  Transmission Date: 20140515
  Serious: Yes (Disabling)
  Sender: FDA-Public Use
  Company Number: DK-PFIZER INC-2012282397

PATIENT
  Age: 58 Year
  Sex: Male
  Weight: 65 kg

DRUGS (3)
  1. ZARATOR [Suspect]
     Indication: HYPERLIPIDAEMIA
     Dosage: 20 MG, 1X/DAY
     Route: 048
     Dates: start: 200201, end: 20121001
  2. HJERTEMAGNYL ^NYCOMED^ [Concomitant]
     Indication: MYOCARDIAL ISCHAEMIA
     Dosage: 75 MG, 1X/DAY
     Dates: start: 20020101
  3. PLAVIX [Concomitant]
     Dosage: UNK
     Dates: start: 2008

REACTIONS (1)
  - Autoimmune pancreatitis [Recovering/Resolving]
